FAERS Safety Report 10509263 (Version 1)
Quarter: 2014Q3

REPORT INFORMATION
  Report Type: Spontaneous
  Country: US (occurrence: None)
  Receive Date: 20140915
  Receipt Date: 20140915
  Transmission Date: 20150326
  Serious: Yes (Other)
  Sender: FDA-Public Use
  Company Number: 2014-US-003577

PATIENT
  Age: 52 Year
  Sex: Female

DRUGS (4)
  1. NUVIGIL [Concomitant]
     Active Substance: ARMODAFINIL
  2. XYREM [Suspect]
     Active Substance: SODIUM OXYBATE
     Indication: NARCOLEPSY
     Route: 048
     Dates: start: 2014, end: 2014
  3. TESTOSTERONE/PROGESTERONE/ESTROGEN (HORMONES) [Concomitant]
  4. XYREM [Suspect]
     Active Substance: SODIUM OXYBATE
     Indication: CATAPLEXY
     Route: 048
     Dates: start: 2014, end: 2014

REACTIONS (7)
  - Feeling jittery [None]
  - Anxiety [None]
  - Hypothyroidism [None]
  - Hypertension [None]
  - Decreased appetite [None]
  - Panic attack [None]
  - Weight decreased [None]

NARRATIVE: CASE EVENT DATE: 20140310
